FAERS Safety Report 24834628 (Version 1)
Quarter: 2025Q1

REPORT INFORMATION
  Report Type: Spontaneous
  Country: FR (occurrence: FR)
  Receive Date: 20250113
  Receipt Date: 20250113
  Transmission Date: 20250409
  Serious: Yes (Hospitalization, Other)
  Sender: CHEPLAPHARM
  Company Number: None

PATIENT
  Age: 56 Year
  Sex: Male
  Weight: 60 kg

DRUGS (18)
  1. PREDNISONE [Suspect]
     Active Substance: PREDNISONE
     Indication: Prophylaxis against transplant rejection
     Dosage: DAILY DOSE: 50 MILLIGRAM
     Route: 048
     Dates: start: 20231031, end: 20231127
  2. PREDNISONE [Suspect]
     Active Substance: PREDNISONE
     Indication: Prophylaxis against transplant rejection
     Dosage: DAILY DOSE: 20 MILLIGRAM
     Route: 048
     Dates: start: 20231127, end: 20231221
  3. PREDNISONE [Suspect]
     Active Substance: PREDNISONE
     Indication: Prophylaxis against transplant rejection
     Dosage: DAILY DOSE: 10 MILLIGRAM
     Route: 048
     Dates: start: 20231221, end: 20240322
  4. PREDNISONE [Suspect]
     Active Substance: PREDNISONE
     Indication: Prophylaxis against transplant rejection
     Dosage: DAILY DOSE: 9 MILLIGRAM
     Route: 048
     Dates: start: 20240322, end: 20240722
  5. PREDNISONE [Suspect]
     Active Substance: PREDNISONE
     Indication: Prophylaxis against transplant rejection
     Dosage: PREDNISONE CORTANCYL 6 MG MORNING?DAILY DOSE: 6 MILLIGRAM
     Route: 048
     Dates: start: 20240722
  6. VALGANCICLOVIR [Suspect]
     Active Substance: VALGANCICLOVIR
     Indication: Opportunistic infection prophylaxis
     Dosage: VALGANCICLOVIR 450 MG MORNING?DAILY DOSE: 450 MILLIGRAM
     Route: 048
     Dates: start: 20231020
  7. NEORAL [Suspect]
     Active Substance: CYCLOSPORINE
     Indication: Prophylaxis against transplant rejection
     Dosage: DAILY DOSE: 240 MILLIGRAM
     Route: 048
     Dates: start: 20231024
  8. NEORAL [Suspect]
     Active Substance: CYCLOSPORINE
     Indication: Prophylaxis against transplant rejection
  9. CELLCEPT [Suspect]
     Active Substance: MYCOPHENOLATE MOFETIL
     Indication: Prophylaxis against transplant rejection
     Dosage: DAILY DOSE: 3000 MILLIGRAM
     Route: 048
     Dates: start: 20231031, end: 20231221
  10. CELLCEPT [Suspect]
     Active Substance: MYCOPHENOLATE MOFETIL
     Indication: Prophylaxis against transplant rejection
     Dosage: DAILY DOSE: 2500 MILLIGRAM
     Route: 048
     Dates: start: 20231221, end: 20240722
  11. CELLCEPT [Suspect]
     Active Substance: MYCOPHENOLATE MOFETIL
     Indication: Prophylaxis against transplant rejection
     Route: 048
     Dates: start: 20240722
  12. CERTICAN [Suspect]
     Active Substance: EVEROLIMUS
     Indication: Prophylaxis against transplant rejection
     Dosage: DAILY DOSE: 0.2 MILLIGRAM
     Route: 048
     Dates: start: 20240722, end: 20240823
  13. CERTICAN [Suspect]
     Active Substance: EVEROLIMUS
     Indication: Prophylaxis against transplant rejection
     Dosage: DAILY DOSE: 0.4 MILLIGRAM
     Route: 048
     Dates: start: 20240823, end: 20240923
  14. CERTICAN [Suspect]
     Active Substance: EVEROLIMUS
     Indication: Prophylaxis against transplant rejection
     Dosage: DAILY DOSE: 0.9 MILLIGRAM
     Route: 048
     Dates: start: 20240923, end: 20241025
  15. CERTICAN [Suspect]
     Active Substance: EVEROLIMUS
     Indication: Prophylaxis against transplant rejection
     Route: 048
     Dates: start: 20241025, end: 20241120
  16. ATOVAQUONE [Concomitant]
     Active Substance: ATOVAQUONE
     Indication: Opportunistic infection prophylaxis
     Route: 048
     Dates: start: 20240104
  17. KARDEGIC [Concomitant]
     Active Substance: ASPIRIN DL-LYSINE
     Indication: Heart transplant
     Dosage: POWDER FOR ORAL SOLUTION IN SACHET. ASPIRIN KAREGIC 75 MG IN THE EVENING?DAILY DOSE: 75 MILLIGRAM
     Route: 048
     Dates: start: 20240209
  18. EZETIMIBE [Concomitant]
     Active Substance: EZETIMIBE
     Dosage: EZETIMIBE 10 MG IN THE EVENING?DAILY DOSE: 10 MILLIGRAM

REACTIONS (2)
  - Dermo-hypodermitis [Recovering/Resolving]
  - Pseudomonas infection [Unknown]

NARRATIVE: CASE EVENT DATE: 20241109
